FAERS Safety Report 4334038-X (Version None)
Quarter: 2004Q2

REPORT INFORMATION
  Report Type: 
  Country: None (occurrence: None)
  Receive Date: 20040402
  Receipt Date: 20040323
  Transmission Date: 20050107
  Serious: Yes (Other)
  Sender: FDA-Public Use
  Company Number: 2004205043GB

PATIENT
  Age: 88 Year
  Sex: Female

DRUGS (1)
  1. BEXTRA [Suspect]

REACTIONS (2)
  - CONFUSIONAL STATE [None]
  - HALLUCINATION [None]
